FAERS Safety Report 10366032 (Version 1)
Quarter: 2014Q3

REPORT INFORMATION
  Report Type: Spontaneous
  Country: US (occurrence: US)
  Receive Date: 20140806
  Receipt Date: 20140806
  Transmission Date: 20150326
  Serious: Yes (Hospitalization)
  Sender: FDA-Public Use
  Company Number: US-ACTELION-A-US2014-103018

PATIENT
  Age: 70 Year
  Sex: Female

DRUGS (3)
  1. ASPIRIN. [Concomitant]
     Active Substance: ASPIRIN
  2. ADCIRCA [Concomitant]
     Active Substance: TADALAFIL
  3. OPSUMIT [Suspect]
     Active Substance: MACITENTAN
     Indication: PULMONARY ARTERIAL HYPERTENSION
     Dosage: 10 MG, QD
     Route: 048
     Dates: start: 20140528, end: 20140729

REACTIONS (6)
  - Nausea [Unknown]
  - Asthenia [Unknown]
  - Gastroenteritis viral [Unknown]
  - Bronchitis [Unknown]
  - Pneumonia [Unknown]
  - Pallor [Unknown]

NARRATIVE: CASE EVENT DATE: 20140724
